FAERS Safety Report 13678284 (Version 1)
Quarter: 2017Q2

REPORT INFORMATION
  Report Type: Spontaneous
  Country: US (occurrence: US)
  Receive Date: 20170621
  Receipt Date: 20170621
  Transmission Date: 20170830
  Serious: No
  Sender: FDA-Public Use
  Company Number: None

PATIENT
  Age: 46 Year
  Sex: Female
  Weight: 96 kg

DRUGS (1)
  1. PANHEMATIN [Suspect]
     Active Substance: HEMIN
     Dosage: ?          OTHER FREQUENCY:MONTHLY;?
     Route: 042
     Dates: start: 20170605

REACTIONS (3)
  - Infusion site bruising [None]
  - Infusion site mass [None]
  - Product reconstitution quality issue [None]

NARRATIVE: CASE EVENT DATE: 20170605
